FAERS Safety Report 5587674-7 (Version None)
Quarter: 2008Q1

REPORT INFORMATION
  Report Type: 
  Country: None (occurrence: None)
  Receive Date: 20080108
  Receipt Date: 20080102
  Transmission Date: 20080703
  Serious: Yes (Life-Threatening, Hospitalization, Other)
  Sender: FDA-Public Use
  Company Number: 163-21880-07110761

PATIENT
  Age: 74 Year
  Sex: Male

DRUGS (4)
  1. REVLIMID [Suspect]
     Indication: MULTIPLE MYELOMA
     Dosage: 10 MG, DAILY, ORAL; 15 MG, DAILY, ORAL; 25 MG, DAILY, ORAL
     Route: 048
     Dates: start: 20061006, end: 20061115
  2. REVLIMID [Suspect]
     Indication: MULTIPLE MYELOMA
     Dosage: 10 MG, DAILY, ORAL; 15 MG, DAILY, ORAL; 25 MG, DAILY, ORAL
     Route: 048
     Dates: start: 20061122, end: 20070404
  3. REVLIMID [Suspect]
     Indication: MULTIPLE MYELOMA
     Dosage: 10 MG, DAILY, ORAL; 15 MG, DAILY, ORAL; 25 MG, DAILY, ORAL
     Route: 048
     Dates: start: 20070430, end: 20070906
  4. WARFARIN SODIUM [Concomitant]

REACTIONS (9)
  - ANAEMIA [None]
  - DIALYSIS [None]
  - GASTROINTESTINAL HAEMORRHAGE [None]
  - MALIGNANT NEOPLASM PROGRESSION [None]
  - MULTIPLE MYELOMA [None]
  - PANCYTOPENIA [None]
  - RENAL FAILURE [None]
  - RESPIRATORY FAILURE [None]
  - THROMBOCYTOPENIA [None]
